FAERS Safety Report 24195567 (Version 1)
Quarter: 2024Q3

REPORT INFORMATION
  Report Type: Spontaneous
  Country: US (occurrence: None)
  Receive Date: 20240809
  Receipt Date: 20240809
  Transmission Date: 20241016
  Serious: No
  Sender: Public
  Company Number: None

PATIENT
  Age: 35 Year
  Sex: Male
  Weight: 70.31 kg

DRUGS (1)
  1. LISDEXAMFETAMINE [Suspect]
     Active Substance: LISDEXAMFETAMINE

REACTIONS (4)
  - Nausea [None]
  - Fatigue [None]
  - Muscle spasms [None]
  - Headache [None]
